FAERS Safety Report 18015366 (Version 3)
Quarter: 2020Q3

REPORT INFORMATION
  Report Type: Report from Study
  Country: US (occurrence: US)
  Receive Date: 20200713
  Receipt Date: 20200919
  Transmission Date: 20201103
  Serious: No
  Sender: FDA-Public Use
  Company Number: NVSC2020US195865

PATIENT
  Sex: Female

DRUGS (1)
  1. COSENTYX [Suspect]
     Active Substance: SECUKINUMAB
     Indication: PSORIASIS
     Dosage: 300 MG (EVERY WEEK X 5 WEEKS THEN EVERY 4 WEEKS THEREAFTER)
     Route: 058

REACTIONS (2)
  - Inappropriate schedule of product administration [Unknown]
  - Injection site bruising [Unknown]
